FAERS Safety Report 4444661-X (Version None)
Quarter: 2004Q3

REPORT INFORMATION
  Report Type: 
  Country: None (occurrence: None)
  Receive Date: 20040907
  Receipt Date: 20040827
  Transmission Date: 20050211
  Serious: No
  Sender: FDA-Public Use
  Company Number: PHRM2004FR02416

PATIENT
  Age: 79 Year
  Sex: Male
  Weight: 119.1 kg

DRUGS (4)
  1. VISUDYNE [Suspect]
     Indication: MACULAR DEGENERATION
     Dosage: 4.59 ML DAILY IV
     Route: 042
     Dates: start: 20040715, end: 20040715
  2. TIMPTOL [Concomitant]
  3. TRUSOPT [Concomitant]
  4. AMLOR [Concomitant]

REACTIONS (3)
  - LOCAL SWELLING [None]
  - RETINAL HAEMORRHAGE [None]
  - VISUAL ACUITY REDUCED [None]
